FAERS Safety Report 5918654-7 (Version None)
Quarter: 2008Q4

REPORT INFORMATION
  Report Type: 
  Country: None (occurrence: None)
  Receive Date: 20081015
  Receipt Date: 20080804
  Transmission Date: 20090506
  Serious: No
  Sender: FDA-Public Use
  Company Number: US-ASTRAZENECA-2008UW01583

PATIENT
  Age: 74 Year
  Sex: Female
  Weight: 67.6 kg

DRUGS (15)
  1. SYMBICORT [Suspect]
     Indication: ASTHMA
     Dosage: 160/4.5 UG 2 PUFFS BID
     Route: 055
     Dates: start: 20070701
  2. SYMBICORT [Suspect]
     Dosage: 160/4.5 UG 3 PUFFS BID
     Route: 055
     Dates: start: 20080626
  3. THYROID PILL [Concomitant]
     Route: 048
  4. PREVACID [Concomitant]
  5. CELEBREX [Concomitant]
  6. SINGULAIR [Concomitant]
  7. CALCIUM [Concomitant]
  8. VITAMIN D [Concomitant]
  9. ACTONEL [Concomitant]
  10. ASPIRIN [Concomitant]
  11. PROAIR HFA [Concomitant]
  12. LEVOXYL [Concomitant]
  13. XOPENEX [Concomitant]
  14. CENTRUM SILVER [Concomitant]
  15. ESTRONEL [Concomitant]

REACTIONS (8)
  - ACNE [None]
  - BACK PAIN [None]
  - BONE DENSITY DECREASED [None]
  - COUGH [None]
  - MUSCLE SPASMS [None]
  - OEDEMA PERIPHERAL [None]
  - PAIN IN EXTREMITY [None]
  - SKIN DISORDER [None]
